FAERS Safety Report 4936674-6 (Version None)
Quarter: 2006Q1

REPORT INFORMATION
  Report Type: 
  Country: None (occurrence: None)
  Receive Date: 20060302
  Receipt Date: 20060224
  Transmission Date: 20060701
  Serious: Yes (Death)
  Sender: FDA-Public Use
  Company Number: 2006-139093-NL

PATIENT
  Age: 55 Year

DRUGS (3)
  1. MIRTAZAPINE [Suspect]
  2. ASPIRIN [Suspect]
  3. DESYREL [Suspect]

REACTIONS (1)
  - COMPLETED SUICIDE [None]
